FAERS Safety Report 25595747 (Version 1)
Quarter: 2025Q3

REPORT INFORMATION
  Report Type: Spontaneous
  Country: US (occurrence: US)
  Receive Date: 20250723
  Receipt Date: 20250723
  Transmission Date: 20251020
  Serious: Yes (Other)
  Sender: ABBVIE
  Company Number: US-ABBVIE-6381100

PATIENT
  Age: 65 Year
  Sex: Female

DRUGS (1)
  1. RINVOQ [Suspect]
     Active Substance: UPADACITINIB
     Indication: Alopecia areata
     Dosage: FORM STRENGTH: 30 MILLIGRAM
     Route: 048

REACTIONS (1)
  - Malignant melanoma [Not Recovered/Not Resolved]
